FAERS Safety Report 4557866-4 (Version None)
Quarter: 2005Q1

REPORT INFORMATION
  Report Type: 
  Country: None (occurrence: None)
  Receive Date: 20050103
  Receipt Date: 20040923
  Transmission Date: 20050727
  Serious: Yes (Other)
  Sender: FDA-Public Use
  Company Number: 2004UW19982

PATIENT
  Sex: Female

DRUGS (3)
  1. CRESTOR [Suspect]
     Dates: end: 20040901
  2. LIPITOR [Concomitant]
  3. MULTIPLE MEDICATION [Concomitant]

REACTIONS (3)
  - GENERALISED OEDEMA [None]
  - JOINT SWELLING [None]
  - MYALGIA [None]
